FAERS Safety Report 9692096 (Version 5)
Quarter: 2015Q3

REPORT INFORMATION
  Report Type: Report from Study
  Country: US (occurrence: US)
  Receive Date: 20131118
  Receipt Date: 20150707
  Transmission Date: 20151125
  Serious: Yes (Hospitalization)
  Sender: FDA-Public Use
  Company Number: US-BIOGENIDEC-2013BI108464

PATIENT
  Age: 60 Year
  Sex: Female

DRUGS (4)
  1. AVONEX [Suspect]
     Active Substance: INTERFERON BETA-1A
     Indication: MULTIPLE SCLEROSIS
     Route: 030
     Dates: start: 20000101
  2. AVONEX [Suspect]
     Active Substance: INTERFERON BETA-1A
     Indication: MULTIPLE SCLEROSIS
     Route: 030
  3. AVONEX [Suspect]
     Active Substance: INTERFERON BETA-1A
     Indication: MULTIPLE SCLEROSIS
     Route: 030
     Dates: start: 20140102, end: 20150605
  4. AVONEX [Suspect]
     Active Substance: INTERFERON BETA-1A
     Indication: MULTIPLE SCLEROSIS
     Route: 030
     Dates: start: 2012

REACTIONS (5)
  - Breast cancer [Recovered/Resolved]
  - Injection site pain [Not Recovered/Not Resolved]
  - Spider vein [Not Recovered/Not Resolved]
  - Varicose vein [Not Recovered/Not Resolved]
  - General symptom [Not Recovered/Not Resolved]

NARRATIVE: CASE EVENT DATE: 20000101
